FAERS Safety Report 4587922-6 (Version None)
Quarter: 2005Q1

REPORT INFORMATION
  Report Type: 
  Country: None (occurrence: None)
  Receive Date: 20050219
  Receipt Date: 20050209
  Transmission Date: 20050727
  Serious: Yes (Death)
  Sender: FDA-Public Use
  Company Number: PHEH2005US01885

PATIENT
  Age: 42 Year
  Sex: Male

DRUGS (3)
  1. TOFRANIL [Suspect]
  2. CLOZAPINE [Suspect]
     Dates: start: 20010201, end: 20041101
  3. AMITRIPTYLINE [Suspect]

REACTIONS (1)
  - DRUG TOXICITY [None]
